FAERS Safety Report 17398146 (Version 1)
Quarter: 2020Q1

REPORT INFORMATION
  Report Type: Spontaneous
  Country: GB (occurrence: GB)
  Receive Date: 20200210
  Receipt Date: 20200210
  Transmission Date: 20200409
  Serious: Yes (Hospitalization)
  Sender: FDA-Public Use
  Company Number: GB-MYLANLABS-2020M1014133

PATIENT
  Age: 95 Year
  Sex: Female

DRUGS (9)
  1. BISOPROLOL [Concomitant]
     Active Substance: BISOPROLOL
     Dosage: 2.5 MILLIGRAM, QD  IN THE MORNING
     Route: 048
  2. ATORVASTATIN [Concomitant]
     Active Substance: ATORVASTATIN
     Dosage: 20 MILLIGRAM, QD  AT NIGHT
     Route: 048
  3. GAVISCON ADVANCE                   /01340901/ [Concomitant]
     Dosage: 20 MILLILITER, PRN  AS NEEDED
     Route: 048
  4. LEVOTHYROXINE SODIUM. [Concomitant]
     Active Substance: LEVOTHYROXINE SODIUM
     Dosage: 75 MICROGRAM, QD  IN THE MORNING
     Route: 048
  5. TRAMADOL. [Suspect]
     Active Substance: TRAMADOL
     Indication: BACK PAIN
     Dosage: 50-100 MG QID
     Route: 048
     Dates: start: 20190907
  6. PARACETAMOL [Concomitant]
     Active Substance: ACETAMINOPHEN
     Dosage: 500 MILLIGRAM  FOUR TO SIX HOURS AS NEEDED
     Route: 048
  7. APIXABAN [Concomitant]
     Active Substance: APIXABAN
     Dosage: 5 MILLIGRAM, QD
     Route: 048
  8. BRICANYL [Concomitant]
     Active Substance: TERBUTALINE SULFATE
     Dosage: 2000 MICROGRAM, QD  AS NEEDED
     Route: 055
  9. DICLOFENAC [Concomitant]
     Active Substance: DICLOFENAC
     Dosage: APPLY BD TO TDS
     Route: 061
     Dates: start: 20190907

REACTIONS (4)
  - Fall [Unknown]
  - Somnolence [Unknown]
  - Delirium [Unknown]
  - Constipation [Recovered/Resolved]

NARRATIVE: CASE EVENT DATE: 20190909
